FAERS Safety Report 10883533 (Version 2)
Quarter: 2015Q1

REPORT INFORMATION
  Report Type: Report from Study
  Country: CN (occurrence: CN)
  Receive Date: 20150303
  Receipt Date: 20150312
  Transmission Date: 20150721
  Serious: Yes (Death)
  Sender: FDA-Public Use
  Company Number: CN-ROCHE-1534444

PATIENT
  Age: 61 Year
  Sex: Female
  Weight: 52 kg

DRUGS (12)
  1. CAPECITABINE. [Suspect]
     Active Substance: CAPECITABINE
     Indication: COLORECTAL CANCER METASTATIC
     Route: 065
     Dates: start: 20140909, end: 20150122
  2. LOPERAMIDE [Concomitant]
     Active Substance: LOPERAMIDE
     Route: 065
     Dates: start: 20150123, end: 20150128
  3. IRON POLYSACCHARIDE [Concomitant]
     Route: 065
     Dates: start: 20150119, end: 20150128
  4. DEPROTEINISED CALF BLOOD INJECTION [Concomitant]
     Route: 065
     Dates: start: 20150123, end: 20150128
  5. BEVACIZUMAB [Suspect]
     Active Substance: BEVACIZUMAB
     Indication: COLORECTAL CANCER METASTATIC
     Dosage: LAST DOSE PRIOR TO SAE: 28/DEC/2014
     Route: 042
     Dates: start: 20140909, end: 20150122
  6. THYMOPENTIN [Concomitant]
     Active Substance: THYMOPENTIN
     Route: 065
     Dates: start: 20150118, end: 20150128
  7. OXALIPLATIN. [Suspect]
     Active Substance: OXALIPLATIN
     Indication: COLORECTAL CANCER METASTATIC
     Route: 065
     Dates: start: 20140909
  8. GLUTATHIONE [Concomitant]
     Active Substance: GLUTATHIONE
     Dosage: REDUCED
     Route: 065
     Dates: start: 20150123, end: 20150126
  9. IRINOTECAN [Suspect]
     Active Substance: IRINOTECAN
     Indication: COLORECTAL CANCER METASTATIC
     Route: 065
  10. POTASSIUM CHLORIDE. [Concomitant]
     Active Substance: POTASSIUM CHLORIDE
     Route: 065
     Dates: start: 20150118, end: 20150128
  11. TROPISETRON HCL [Concomitant]
     Route: 065
     Dates: start: 20150123, end: 20150127
  12. IRINOTECAN [Suspect]
     Active Substance: IRINOTECAN
     Route: 065
     Dates: start: 20150122, end: 20150122

REACTIONS (1)
  - Intestinal perforation [Fatal]

NARRATIVE: CASE EVENT DATE: 20150128
